FAERS Safety Report 10394659 (Version 5)
Quarter: 2015Q3

REPORT INFORMATION
  Report Type: Report from Study
  Country: BE (occurrence: BE)
  Receive Date: 20140820
  Receipt Date: 20150710
  Transmission Date: 20151125
  Serious: Yes (Hospitalization)
  Sender: FDA-Public Use
  Company Number: BE-ROCHE-1450453

PATIENT
  Age: 56 Year
  Sex: Female

DRUGS (27)
  1. MIRTAZAPINE. [Concomitant]
     Active Substance: MIRTAZAPINE
     Route: 065
     Dates: start: 201301
  2. REDOMEX [Concomitant]
     Route: 065
     Dates: start: 20140101
  3. DIXARIT [Concomitant]
     Active Substance: CLONIDINE HYDROCHLORIDE
     Route: 065
     Dates: start: 20131022
  4. TRASTUZUMAB [Suspect]
     Active Substance: TRASTUZUMAB
     Indication: HER-2 POSITIVE BREAST CANCER
     Dosage: LAST DOSE PRIOR TO SAE 22/JUL/2014
     Route: 042
     Dates: start: 20130326, end: 20130326
  5. PERIO-AID (UNK INGREDIENTS) [Concomitant]
     Route: 065
     Dates: start: 20130402
  6. EFFEXOR EXEL [Concomitant]
     Route: 065
     Dates: start: 20140101
  7. REMERGON [Concomitant]
     Active Substance: MIRTAZAPINE
     Route: 065
     Dates: start: 201301
  8. PERTUZUMAB [Suspect]
     Active Substance: PERTUZUMAB
     Route: 042
     Dates: start: 20130416
  9. TRASTUZUMAB [Suspect]
     Active Substance: TRASTUZUMAB
     Route: 042
     Dates: start: 20130416
  10. PANTOPRAZOLE [Concomitant]
     Active Substance: PANTOPRAZOLE SODIUM
     Route: 065
     Dates: start: 201301
  11. DAFALGAN [Concomitant]
     Active Substance: ACETAMINOPHEN
     Route: 065
     Dates: start: 20130409
  12. FLOXAPEN [Concomitant]
     Active Substance: FLUCLOXACILLIN
     Route: 065
     Dates: start: 20130728, end: 20130807
  13. LOCOID [Concomitant]
     Active Substance: HYDROCORTISONE BUTYRATE
     Dosage: 2 APPLICATION
     Route: 065
     Dates: start: 20140204
  14. STILNOCT [Concomitant]
     Active Substance: ZOLPIDEM TARTRATE
     Route: 065
     Dates: start: 20130402
  15. PACLITAXEL. [Suspect]
     Active Substance: PACLITAXEL
     Indication: HER-2 POSITIVE BREAST CANCER
     Dosage: LAST DOSE PRIOR TO SAE 23/JUL/2013
     Route: 042
     Dates: start: 20130326
  16. CONTRAMAL [Concomitant]
     Active Substance: TRAMADOL HYDROCHLORIDE
     Route: 065
     Dates: start: 20130409
  17. REDOMEX [Concomitant]
     Route: 065
     Dates: start: 2013
  18. PERINDOPRIL [Concomitant]
     Active Substance: PERINDOPRIL
     Route: 065
     Dates: start: 201301
  19. AMOXICLAV [Concomitant]
     Active Substance: AMOXICILLIN\CLAVULANIC ACID
     Dosage: 875/125
     Route: 065
     Dates: start: 20140516, end: 20150530
  20. PERTUZUMAB [Suspect]
     Active Substance: PERTUZUMAB
     Indication: HER-2 POSITIVE BREAST CANCER
     Dosage: LAST DOSE PRIOR TO SAE 22/JUL/2014
     Route: 042
     Dates: start: 20130326, end: 20130326
  21. FORLAX [Concomitant]
     Active Substance: POLYETHYLENE GLYCOL 4000
     Route: 065
     Dates: start: 20130402
  22. BRUFEN [Concomitant]
     Active Substance: IBUPROFEN
     Route: 065
     Dates: start: 20130409
  23. ZYRTEC [Concomitant]
     Active Substance: CETIRIZINE HYDROCHLORIDE
     Route: 065
     Dates: start: 20130325, end: 20130507
  24. DEXAMETHASONE. [Concomitant]
     Active Substance: DEXAMETHASONE
     Route: 065
     Dates: start: 20130325, end: 20130507
  25. AMOXICILLIN. [Concomitant]
     Active Substance: AMOXICILLIN
     Route: 065
     Dates: start: 20130715, end: 20130721
  26. EFFEXOR EXEL [Concomitant]
     Route: 065
     Dates: start: 201301
  27. CIPRALEX [Concomitant]
     Active Substance: ESCITALOPRAM OXALATE
     Route: 065
     Dates: start: 201301, end: 20130625

REACTIONS (1)
  - Erysipelas [Recovered/Resolved]

NARRATIVE: CASE EVENT DATE: 20140803
